FAERS Safety Report 5079759-9 (Version None)
Quarter: 2006Q3

REPORT INFORMATION
  Report Type: 
  Country: None (occurrence: None)
  Receive Date: 20060815
  Receipt Date: 20060123
  Transmission Date: 20061208
  Serious: No
  Sender: FDA-Public Use
  Company Number: US-GLAXOSMITHKLINE-A0590430A

PATIENT
  Age: 37 Year
  Sex: Male

DRUGS (2)
  1. TAGAMET HB 200 [Suspect]
     Dates: start: 20060114, end: 20060114
  2. PEPTO BISMOL [Concomitant]

REACTIONS (1)
  - HYPERCHLORHYDRIA [None]
